FAERS Safety Report 7867605-7 (Version None)
Quarter: 2011Q4

REPORT INFORMATION
  Report Type: 
  Country: None (occurrence: None)
  Receive Date: 20111028
  Receipt Date: 20100325
  Transmission Date: 20120403
  Serious: No
  Sender: FDA-Public Use
  Company Number: US-BAYER-201017630NA

PATIENT
  Sex: Male

DRUGS (1)
  1. AVELOX [Suspect]

REACTIONS (3)
  - PALPITATIONS [None]
  - ANXIETY [None]
  - PANIC ATTACK [None]
